FAERS Safety Report 5913967-7 (Version None)
Quarter: 2008Q3

REPORT INFORMATION
  Report Type: 
  Country: None (occurrence: None)
  Receive Date: 20080909
  Receipt Date: 20080121
  Transmission Date: 20090109
  Serious: Yes (Death, Other)
  Sender: FDA-Public Use
  Company Number: 163-20785-07091150

PATIENT
  Age: 44 Year
  Sex: Male
  Weight: 99.7913 kg

DRUGS (4)
  1. THALOMID [Suspect]
     Indication: MULTIPLE MYELOMA
     Dosage: 200 MG, 1 IN 1 D, ORAL
     Route: 048
     Dates: start: 20070726, end: 20070919
  2. DEXAMETHASONE TAB [Concomitant]
  3. ZOFRAN [Concomitant]
  4. DILAUDID [Concomitant]

REACTIONS (7)
  - AMYLOIDOSIS [None]
  - CARDIAC ARREST [None]
  - MULTIPLE MYELOMA [None]
  - PULMONARY CONGESTION [None]
  - PULMONARY HAEMORRHAGE [None]
  - PULMONARY OEDEMA [None]
  - SWOLLEN TONGUE [None]
